FAERS Safety Report 7380892-7 (Version None)
Quarter: 2011Q1

REPORT INFORMATION
  Report Type: 
  Country: None (occurrence: None)
  Receive Date: 20110329
  Receipt Date: 20110316
  Transmission Date: 20110831
  Serious: Yes (Other)
  Sender: FDA-Public Use
  Company Number: PHHY2011US18334

PATIENT
  Sex: Female

DRUGS (1)
  1. HYPOTEARS DDPF [Suspect]
     Indication: DRY EYE
     Dosage: 15 ML, UNK

REACTIONS (2)
  - EYELID TUMOUR [None]
  - MACULAR DEGENERATION [None]
